FAERS Safety Report 15780447 (Version 2)
Quarter: 2020Q3

REPORT INFORMATION
  Report Type: Report from Study
  Country: US (occurrence: US)
  Receive Date: 20190102
  Receipt Date: 20200828
  Transmission Date: 20201102
  Serious: Yes (Other)
  Sender: FDA-Public Use
  Company Number: US-AUROBINDO-AUR-APL-2018-063762

PATIENT
  Age: 13 Month
  Sex: Female

DRUGS (4)
  1. CARBOPLATIN INJECTION [Suspect]
     Active Substance: CARBOPLATIN
     Indication: CONGENITAL RETINOBLASTOMA
     Dosage: CYCLICAL,3 CYCLE, OPHTHALMIC ARTERY CHEMOTHERAPY, TO THE LEFT EYE ONLY
     Route: 013
  2. NITROUS OXIDE. [Suspect]
     Active Substance: NITROUS OXIDE
     Indication: INDUCTION OF ANAESTHESIA
     Dosage: WITH 65.6% MAX ET N2O
     Route: 055
  3. HEPARIN [Concomitant]
     Active Substance: HEPARIN SODIUM
     Indication: PROPHYLAXIS
     Dosage: UNK
     Route: 065
  4. SEVOFLURANE. [Concomitant]
     Active Substance: SEVOFLURANE
     Indication: INDUCTION OF ANAESTHESIA
     Dosage: UNK
     Route: 065

REACTIONS (6)
  - Product use in unapproved indication [Unknown]
  - Retinal pigment epitheliopathy [Unknown]
  - Choroidal infarction [Unknown]
  - Ischaemia [Unknown]
  - Arterial thrombosis [Unknown]
  - Toxicity to various agents [Unknown]
